FAERS Safety Report 6963063-5 (Version None)
Quarter: 2010Q3

REPORT INFORMATION
  Report Type: 
  Country: None (occurrence: None)
  Receive Date: 20100902
  Receipt Date: 20100824
  Transmission Date: 20110219
  Serious: Yes (Other)
  Sender: FDA-Public Use
  Company Number: MX-ELI_LILLY_AND_COMPANY-MX201008002318

PATIENT
  Sex: Female
  Weight: 3600 kg

DRUGS (4)
  1. KEFLEX [Suspect]
     Dosage: 500 MG, UNK
     Route: 064
     Dates: start: 20091201
  2. BONADOXIN [Concomitant]
     Indication: NAUSEA
     Dosage: UNK, UNKNOWN
     Route: 064
     Dates: start: 20090501, end: 20090701
  3. MAGALDRATE W/SIMETICONE [Concomitant]
     Dosage: UNK, 3/D
     Route: 064
  4. INDOMETHACIN [Concomitant]
     Indication: COMPLICATION OF PREGNANCY
     Dosage: UNK, UNKNOWN
     Route: 064

REACTIONS (6)
  - CAESAREAN SECTION [None]
  - DRUG EXPOSURE DURING PREGNANCY [None]
  - HYPOXIA [None]
  - MATERNAL DRUGS AFFECTING FOETUS [None]
  - NEONATAL ASPIRATION [None]
  - NEONATAL HYPOXIA [None]
